FAERS Safety Report 15478590 (Version 1)
Quarter: 2018Q4

REPORT INFORMATION
  Report Type: Spontaneous
  Country: US (occurrence: US)
  Receive Date: 20181009
  Receipt Date: 20181009
  Transmission Date: 20190205
  Serious: Yes (Death, Other)
  Sender: FDA-Public Use
  Company Number: US-GILEAD-2018-0366608

PATIENT
  Age: 51 Year
  Sex: Female
  Weight: 50.1 kg

DRUGS (1)
  1. YESCARTA [Suspect]
     Active Substance: AXICABTAGENE CILOLEUCEL
     Indication: DIFFUSE LARGE B-CELL LYMPHOMA
     Dosage: UNK
     Route: 065
     Dates: start: 20180820, end: 20180820

REACTIONS (13)
  - Diffuse large B-cell lymphoma [Fatal]
  - Hypoxia [Unknown]
  - Tachycardia [Unknown]
  - Malaise [Unknown]
  - Confusional state [Unknown]
  - Tachypnoea [Unknown]
  - Disorientation [Unknown]
  - Somnolence [Unknown]
  - Pyrexia [Unknown]
  - Agitation [Unknown]
  - Encephalopathy [Unknown]
  - Cytokine release syndrome [Unknown]
  - Aphasia [Unknown]

NARRATIVE: CASE EVENT DATE: 20180821
